FAERS Safety Report 9823613 (Version 1)
Quarter: 2014Q1

REPORT INFORMATION
  Report Type: Report from Study
  Country: KR (occurrence: KR)
  Receive Date: 20140116
  Receipt Date: 20140116
  Transmission Date: 20141002
  Serious: No
  Sender: FDA-Public Use
  Company Number: PHHY2014KR005003

PATIENT
  Age: 78 Year
  Sex: Female

DRUGS (13)
  1. AMN107 [Suspect]
     Dosage: 600 MG, UNK
     Route: 048
     Dates: start: 20131107
  2. RENOX [Concomitant]
     Dosage: 180 MG, UNK
     Route: 048
     Dates: start: 20131216, end: 20131220
  3. VESICARE [Concomitant]
     Dosage: 10 MG, UNK
     Route: 048
     Dates: start: 20131220
  4. VESICARE [Concomitant]
     Dosage: 5MG
     Route: 048
     Dates: start: 20131029, end: 20131216
  5. AUGMENTIN [Concomitant]
     Dosage: 1125 MG, UNK
     Route: 048
     Dates: start: 20131216, end: 20131220
  6. SOXINASE [Concomitant]
     Dosage: 3 TSP, UNK
     Route: 048
     Dates: start: 20131216, end: 20131220
  7. MAGNESIUM OXIDE [Concomitant]
     Dosage: 100 MG, UNK
     Route: 048
     Dates: start: 20131111, end: 20131113
  8. MAGNESIUM OXIDE [Concomitant]
     Dosage: 1500 MG
     Route: 048
     Dates: start: 20131114, end: 20131211
  9. MAGNESIUM OXIDE [Concomitant]
     Dosage: 2250 UNK, UNK
     Route: 048
     Dates: start: 20131213, end: 20131226
  10. CRAVIT [Concomitant]
     Dosage: 500 MG, UNK
     Route: 048
     Dates: start: 20131119, end: 20131121
  11. GANATON [Concomitant]
     Dosage: 150 MG, UNK
     Route: 048
     Dates: start: 20131114, end: 20131211
  12. MEGESTROL ACETATE [Concomitant]
     Dosage: 5.2 ML, UNK
     Route: 048
     Dates: start: 20131213
  13. DUPHALAC                                /NET/ [Concomitant]
     Dosage: 20 ML, UNK
     Route: 048
     Dates: start: 20131114

REACTIONS (1)
  - Cataract nuclear [Unknown]
